FAERS Safety Report 8094476-9 (Version None)
Quarter: 2012Q1

REPORT INFORMATION
  Report Type: 
  Country: None (occurrence: None)
  Receive Date: 20120130
  Receipt Date: 20120117
  Transmission Date: 20120608
  Serious: Yes (Hospitalization, Other)
  Sender: FDA-Public Use
  Company Number: ES-ELI_LILLY_AND_COMPANY-ES201111008355

PATIENT
  Age: 27 Year
  Sex: Male
  Weight: 75 kg

DRUGS (5)
  1. CANNABIS [Concomitant]
  2. ZYPREXA [Concomitant]
     Dosage: 10 MG, UNK
     Route: 048
  3. LORAZEPAM [Concomitant]
     Dosage: 3 MG, UNK
     Route: 048
  4. AMPHETAMINES [Concomitant]
  5. OLANZAPINE [Suspect]
     Indication: SCHIZOPHRENIA
     Dosage: 300 MG, UNKNOWN
     Dates: start: 20111128

REACTIONS (6)
  - BLOOD PRESSURE DECREASED [None]
  - DIZZINESS [None]
  - ASTHENIA [None]
  - SOMNOLENCE [None]
  - DYSARTHRIA [None]
  - SEDATION [None]
